FAERS Safety Report 13066393 (Version 2)
Quarter: 2017Q1

REPORT INFORMATION
  Report Type: Spontaneous
  Country: US (occurrence: US)
  Receive Date: 20161227
  Receipt Date: 20170110
  Transmission Date: 20170428
  Serious: Yes (Other)
  Sender: FDA-Public Use
  Company Number: US-MALLINCKRODT-T201605900

PATIENT
  Sex: Male

DRUGS (2)
  1. GABLOFEN [Suspect]
     Active Substance: BACLOFEN
     Indication: MULTIPLE SCLEROSIS
     Dosage: MINIMUM RATE
     Route: 037
  2. GABLOFEN [Suspect]
     Active Substance: BACLOFEN
     Indication: MUSCLE SPASTICITY
     Dosage: 150 ?G, QD
     Route: 037
     Dates: end: 201611

REACTIONS (5)
  - Incision site infection [Unknown]
  - Therapy cessation [Unknown]
  - Device issue [Unknown]
  - Urinary tract infection [Unknown]
  - Wound infection pseudomonas [Unknown]

NARRATIVE: CASE EVENT DATE: 2016
